FAERS Safety Report 9203625 (Version 2)
Quarter: 2013Q2

REPORT INFORMATION
  Report Type: Spontaneous
  Country: FR (occurrence: FR)
  Receive Date: 20130402
  Receipt Date: 20130619
  Transmission Date: 20140414
  Serious: Yes (Other)
  Sender: FDA-Public Use
  Company Number: PHHY2013FR023391

PATIENT
  Age: 36 Year
  Sex: Male

DRUGS (4)
  1. TASIGNA [Suspect]
     Indication: CHRONIC MYELOID LEUKAEMIA
     Dosage: 600 MG, DAILY
     Route: 048
     Dates: start: 201301
  2. TASIGNA [Suspect]
     Dosage: 200 MG, BID
     Route: 048
  3. MOPRAL [Concomitant]
     Dosage: 20 MG
  4. GELSEMIUM [Concomitant]

REACTIONS (2)
  - Neutropenia [Recovered/Resolved]
  - Leukopenia [Unknown]
